FAERS Safety Report 6690698-X (Version None)
Quarter: 2010Q2

REPORT INFORMATION
  Report Type: 
  Country: None (occurrence: None)
  Receive Date: 20100420
  Receipt Date: 20100420
  Transmission Date: 20101027
  Serious: Yes (Hospitalization)
  Sender: FDA-Public Use
  Company Number: None

PATIENT
  Age: 59 Year
  Sex: Male
  Weight: 104.3 kg

DRUGS (4)
  1. LISINOPRIL [Suspect]
     Indication: HYPERTENSION
     Dosage: 20 MG EVERY DAY PO 1.5 MG BID PO
     Route: 048
     Dates: start: 20090825, end: 20100219
  2. LISINOPRIL [Suspect]
     Indication: POST-TRAUMATIC STRESS DISORDER
     Dosage: 20 MG EVERY DAY PO 1.5 MG BID PO
     Route: 048
     Dates: start: 20090825, end: 20100219
  3. LISINOPRIL [Suspect]
     Indication: HYPERTENSION
     Dosage: 20 MG EVERY DAY PO 1.5 MG BID PO
     Route: 048
     Dates: start: 20100112, end: 20100219
  4. LISINOPRIL [Suspect]
     Indication: POST-TRAUMATIC STRESS DISORDER
     Dosage: 20 MG EVERY DAY PO 1.5 MG BID PO
     Route: 048
     Dates: start: 20100112, end: 20100219

REACTIONS (11)
  - BLOOD PRESSURE INCREASED [None]
  - DIZZINESS POSTURAL [None]
  - HEART RATE INCREASED [None]
  - NEPHROPATHY TOXIC [None]
  - ORTHOSTATIC HYPOTENSION [None]
  - PRESYNCOPE [None]
  - RENAL ARTERY STENOSIS [None]
  - RENAL CYST [None]
  - RENAL FAILURE ACUTE [None]
  - RENAL TUBULAR NECROSIS [None]
  - TUBULOINTERSTITIAL NEPHRITIS [None]
